FAERS Safety Report 16933869 (Version 2)
Quarter: 2019Q4

REPORT INFORMATION
  Report Type: Spontaneous
  Country: US (occurrence: US)
  Receive Date: 20191018
  Receipt Date: 20191023
  Transmission Date: 20200122
  Serious: No
  Sender: FDA-Public Use
  Company Number: US-TEVA-2019-US-1124771

PATIENT
  Sex: Male

DRUGS (1)
  1. BUPRENORPHINE TEVA [Suspect]
     Active Substance: BUPRENORPHINE
     Indication: BACK PAIN
     Dosage: 15 MCG / HR
     Route: 062
     Dates: start: 2013

REACTIONS (6)
  - Panic attack [Unknown]
  - Back pain [Unknown]
  - Tongue discomfort [Unknown]
  - Anxiety [Unknown]
  - Oral discomfort [Unknown]
  - Product adhesion issue [Unknown]
